FAERS Safety Report 5100102-0 (Version None)
Quarter: 2006Q3

REPORT INFORMATION
  Report Type: 
  Country: None (occurrence: None)
  Receive Date: 20060908
  Receipt Date: 20060901
  Transmission Date: 20061208
  Serious: Yes (Other)
  Sender: FDA-Public Use
  Company Number: US-BOEHRINGER INGELHEIM PHARMACEUTICALS, INC.-2006-DE-04644GD

PATIENT
  Age: 62 Year
  Sex: Male

DRUGS (2)
  1. IPRATROPIUM BROMIDE [Suspect]
     Indication: RESPIRATORY FAILURE
     Route: 055
  2. ALBUTEROL SPIROS [Suspect]
     Indication: RESPIRATORY FAILURE
     Route: 055

REACTIONS (8)
  - BLOOD PRESSURE DECREASED [None]
  - DEVICE MALFUNCTION [None]
  - LIFE SUPPORT [None]
  - LOSS OF CONSCIOUSNESS [None]
  - RENAL TUBULAR ACIDOSIS [None]
  - RESPIRATORY ACIDOSIS [None]
  - RESPIRATORY ALKALOSIS [None]
  - TACHYPNOEA [None]
